FAERS Safety Report 4527445-3 (Version None)
Quarter: 2004Q4

REPORT INFORMATION
  Report Type: 
  Country: None (occurrence: None)
  Receive Date: 20041215
  Receipt Date: 20041208
  Transmission Date: 20050328
  Serious: Yes (Hospitalization)
  Sender: FDA-Public Use
  Company Number: 200414621FR

PATIENT
  Age: 48 Year
  Sex: Male

DRUGS (11)
  1. FLAGYL [Suspect]
     Route: 042
     Dates: start: 20040917, end: 20040929
  2. PYOSTACINE [Concomitant]
     Route: 048
     Dates: start: 20040915
  3. LOVENOX [Concomitant]
     Dates: start: 20040918
  4. TRAMADOL HCL [Concomitant]
     Route: 048
  5. IMOVANE [Concomitant]
  6. DI-ANTALVIC [Concomitant]
  7. MYAMBUTOL [Concomitant]
     Route: 048
     Dates: start: 20040917
  8. ANSATIPINE [Concomitant]
     Route: 048
     Dates: start: 20040917
  9. VFEND [Concomitant]
     Route: 042
     Dates: start: 20040917, end: 20040920
  10. MOTILIUM [Concomitant]
  11. NEURONTIN [Concomitant]

REACTIONS (3)
  - GRANULOCYTOPENIA [None]
  - HYPONATRAEMIA [None]
  - LABORATORY TEST ABNORMAL [None]
